FAERS Safety Report 12402884 (Version 2)
Quarter: 2016Q3

REPORT INFORMATION
  Report Type: Spontaneous
  Country: US (occurrence: US)
  Receive Date: 20160525
  Receipt Date: 20160705
  Transmission Date: 20161109
  Serious: Yes (Hospitalization)
  Sender: FDA-Public Use
  Company Number: US-PFIZER INC-2016272282

PATIENT
  Age: 69 Year
  Sex: Male

DRUGS (5)
  1. ATENOLOL. [Concomitant]
     Active Substance: ATENOLOL
     Dosage: 50 MG, 1X/DAY
     Dates: start: 2006
  2. SAW PALMETTO /00833501/ [Concomitant]
     Active Substance: SAW PALMETTO
     Indication: PROSTATE CANCER
     Dosage: UNK
     Dates: start: 201602
  3. PROTONIX [Concomitant]
     Active Substance: PANTOPRAZOLE SODIUM
     Indication: GASTROOESOPHAGEAL REFLUX DISEASE
     Dosage: UNK
     Dates: start: 2006, end: 20150303
  4. LISINOPRIL. [Concomitant]
     Active Substance: LISINOPRIL
     Indication: BLOOD PRESSURE ABNORMAL
     Dosage: 40 MG, 1X/DAY
     Dates: start: 2006
  5. NIFEDIPINE. [Suspect]
     Active Substance: NIFEDIPINE
     Dosage: 40 MG, 1X/DAY
     Dates: start: 2006

REACTIONS (8)
  - Weight decreased [Unknown]
  - Hypersensitivity [Unknown]
  - Blood sodium abnormal [Unknown]
  - Urticaria [Unknown]
  - Nervous system disorder [Unknown]
  - Tremor [Unknown]
  - Gastrointestinal motility disorder [Not Recovered/Not Resolved]
  - Drug ineffective [Unknown]

NARRATIVE: CASE EVENT DATE: 20120618
